FAERS Safety Report 16224984 (Version 3)
Quarter: 2022Q4

REPORT INFORMATION
  Report Type: Spontaneous
  Country: US (occurrence: None)
  Receive Date: 20190422
  Receipt Date: 20221020
  Transmission Date: 20230112
  Serious: Yes (Hospitalization, Other)
  Sender: FDA-Public Use
  Company Number: 2019SE56530

PATIENT
  Age: 50 Year
  Sex: Male
  Weight: 59 kg

DRUGS (32)
  1. NEXIUM [Suspect]
     Active Substance: ESOMEPRAZOLE MAGNESIUM
     Indication: Gastrooesophageal reflux disease
     Route: 048
     Dates: start: 20040830, end: 20170305
  2. NEXIUM [Suspect]
     Active Substance: ESOMEPRAZOLE MAGNESIUM
     Indication: Gastrooesophageal reflux disease
     Route: 048
     Dates: start: 200408, end: 201703
  3. NEXIUM [Suspect]
     Active Substance: ESOMEPRAZOLE MAGNESIUM
     Indication: Gastrooesophageal reflux disease
     Dosage: 40.0MG UNKNOWN
     Route: 048
     Dates: start: 200408, end: 201703
  4. NEXIUM [Suspect]
     Active Substance: ESOMEPRAZOLE MAGNESIUM
     Indication: Gastrooesophageal reflux disease
     Dosage: GENERIC40.0MG UNKNOWN
     Route: 065
     Dates: start: 201703, end: 201709
  5. NEXIUM [Suspect]
     Active Substance: ESOMEPRAZOLE MAGNESIUM
     Indication: Gastrooesophageal reflux disease
     Dosage: 20.0MG UNKNOWN
     Route: 048
     Dates: start: 200408, end: 201703
  6. OMEPRAZOLE [Suspect]
     Active Substance: OMEPRAZOLE
     Indication: Gastrooesophageal reflux disease
     Dosage: 40.0MG UNKNOWN
     Route: 048
     Dates: start: 201708, end: 201711
  7. OMEPRAZOLE [Suspect]
     Active Substance: OMEPRAZOLE
     Indication: Gastrooesophageal reflux disease
     Dosage: UNKNOWN
     Route: 065
  8. PREVACID 24 HR [Suspect]
     Active Substance: LANSOPRAZOLE
     Route: 065
  9. ZANTAC 150 (RANITIDINE HYDROCHLORIDE) [Suspect]
     Active Substance: RANITIDINE HYDROCHLORIDE
     Route: 065
  10. ATORVASTATIN [Concomitant]
     Active Substance: ATORVASTATIN
     Indication: Hypertension
     Route: 065
     Dates: start: 20190117
  11. AMITRYPTYLIN [Concomitant]
     Indication: Headache
     Route: 065
     Dates: start: 201710, end: 201901
  12. TRAMADOL [Concomitant]
     Active Substance: TRAMADOL
     Indication: Pain
     Route: 065
     Dates: start: 200504, end: 201503
  13. LISINOPRIL [Concomitant]
     Active Substance: LISINOPRIL
     Indication: Hypertension
     Route: 065
     Dates: start: 200401, end: 200512
  14. MICARDIS [Concomitant]
     Active Substance: TELMISARTAN
     Indication: Hypertension
     Route: 065
     Dates: start: 200405, end: 200510
  15. NAPROXEN [Concomitant]
     Active Substance: NAPROXEN
     Indication: Tendonitis
     Dates: start: 201209, end: 201312
  16. AZITHROMYCIN [Concomitant]
     Active Substance: AZITHROMYCIN
     Indication: Nasopharyngitis
     Route: 065
     Dates: start: 20070921
  17. OLMESARTAN [Concomitant]
     Active Substance: OLMESARTAN
     Indication: Hypertension
     Route: 065
     Dates: start: 200703, end: 201712
  18. DYNACIRC [Concomitant]
     Active Substance: ISRADIPINE
  19. ALLEGRA [Concomitant]
     Active Substance: FEXOFENADINE HYDROCHLORIDE
  20. ALBUTEROL [Concomitant]
     Active Substance: ALBUTEROL
  21. HYOSCYAMINE [Concomitant]
     Active Substance: HYOSCYAMINE
  22. AMITIZA [Concomitant]
     Active Substance: LUBIPROSTONE
  23. AZOR [Concomitant]
     Active Substance: AMLODIPINE BESYLATE\OLMESARTAN MEDOXOMIL
  24. CARISOPRODOL [Concomitant]
     Active Substance: CARISOPRODOL
  25. RANITIDINE [Concomitant]
     Active Substance: RANITIDINE
     Route: 065
     Dates: start: 201604, end: 201803
  26. PEPTO-BISMOL [Concomitant]
     Active Substance: BISMUTH SUBSALICYLATE
     Route: 065
     Dates: start: 201006, end: 201007
  27. DICLOFENAC [Concomitant]
     Active Substance: DICLOFENAC
  28. SUCRALFATE [Concomitant]
     Active Substance: SUCRALFATE
  29. HYOMAX [Concomitant]
     Active Substance: HYOSCYAMINE SULFATE
  30. LEVITRA [Concomitant]
     Active Substance: VARDENAFIL HYDROCHLORIDE
  31. IPRATROPIUM [Concomitant]
     Active Substance: IPRATROPIUM
  32. HYDROCHLOROTHIAZIDE [Concomitant]
     Active Substance: HYDROCHLOROTHIAZIDE

REACTIONS (3)
  - Chronic kidney disease [Not Recovered/Not Resolved]
  - Renal cancer [Not Recovered/Not Resolved]
  - Tubulointerstitial nephritis [Unknown]

NARRATIVE: CASE EVENT DATE: 20060101
